FAERS Safety Report 8862426 (Version 2)
Quarter: 2012Q4

REPORT INFORMATION
  Report Type: 
  Country: US (occurrence: US)
  Receive Date: 20121026
  Receipt Date: 20121220
  Transmission Date: 20130627
  Serious: Yes (Other)
  Sender: FDA-Public Use
  Company Number: PHEH2012US020771

PATIENT
  Sex: Female
  Weight: 74.83 kg

DRUGS (2)
  1. DIOVAN [Suspect]
     Dosage: 80 mg, daily
     Dates: start: 20090408
  2. DIOVAN [Suspect]
     Dosage: 160 mg, daily

REACTIONS (3)
  - Chronic obstructive pulmonary disease [Unknown]
  - Neoplasm malignant [Unknown]
  - Cough [Unknown]
